FAERS Safety Report 13762805 (Version 1)
Quarter: 2017Q3

REPORT INFORMATION
  Report Type: Spontaneous
  Country: US (occurrence: US)
  Receive Date: 20170718
  Receipt Date: 20170718
  Transmission Date: 20171127
  Serious: Yes (Hospitalization, Other)
  Sender: FDA-Public Use
  Company Number: US-ZYDUS-015731

PATIENT
  Age: 16 Year
  Sex: Female

DRUGS (4)
  1. IRON [Suspect]
     Active Substance: IRON
     Indication: PRODUCT USED FOR UNKNOWN INDICATION
     Dosage: 54 TABLETS OF FERROUS SULFATE (358 MG/KG ELEMENTAL IRON),
     Route: 048
  2. OMEPRAZOLE. [Suspect]
     Active Substance: OMEPRAZOLE
     Indication: PRODUCT USED FOR UNKNOWN INDICATION
     Route: 048
  3. IBUPROFEN. [Suspect]
     Active Substance: IBUPROFEN
     Indication: PRODUCT USED FOR UNKNOWN INDICATION
     Route: 048
  4. DIPHENHYDRAMINE. [Suspect]
     Active Substance: DIPHENHYDRAMINE
     Indication: PRODUCT USED FOR UNKNOWN INDICATION
     Route: 048

REACTIONS (16)
  - Coagulopathy [Recovered/Resolved]
  - Tachypnoea [Recovered/Resolved]
  - Hepatic encephalopathy [Recovered/Resolved]
  - Hypotension [Recovered/Resolved]
  - Abdominal tenderness [Recovered/Resolved]
  - Acute hepatic failure [Recovered/Resolved]
  - Tachycardia [Recovered/Resolved]
  - Hepatic necrosis [Recovered/Resolved]
  - Haematemesis [Recovered/Resolved]
  - Toxicity to various agents [Recovered/Resolved]
  - Hepatic function abnormal [Recovered/Resolved]
  - Hepatic enzyme increased [Recovered/Resolved]
  - Suicide attempt [Recovered/Resolved]
  - Hepatic haemorrhage [Recovered/Resolved]
  - Cholestasis [Recovered/Resolved]
  - Metabolic acidosis [Recovered/Resolved]
